FAERS Safety Report 17939562 (Version 1)
Quarter: 2020Q2

REPORT INFORMATION
  Report Type: Spontaneous
  Country: DE (occurrence: DE)
  Receive Date: 20200625
  Receipt Date: 20200625
  Transmission Date: 20200714
  Serious: Yes (Hospitalization)
  Sender: FDA-Public Use
  Company Number: DE-TEVA-2020-DE-1790555

PATIENT
  Age: 81 Year
  Sex: Male

DRUGS (4)
  1. PROPAFENON [Suspect]
     Active Substance: PROPAFENONE
     Dosage: 2 DOSAGE FORMS DAILY; NK MG, 1-0-1-0,
     Route: 048
     Dates: start: 20200426
  2. AMIODARON [Concomitant]
     Active Substance: AMIODARONE
     Dosage: 200 MG,
     Route: 048
     Dates: end: 20200428
  3. BISOPROLOL [Concomitant]
     Active Substance: BISOPROLOL
     Dosage: 2.5 MILLIGRAM DAILY; 1-0-0-0
     Route: 048
  4. RAMIPRIL. [Concomitant]
     Active Substance: RAMIPRIL
     Dosage: 10 MILLIGRAM DAILY; 1-0-1-0
     Route: 048

REACTIONS (2)
  - Constipation [Unknown]
  - Abdominal pain [Unknown]
